FAERS Safety Report 23447137 (Version 1)
Quarter: 2024Q1

REPORT INFORMATION
  Report Type: Spontaneous
  Country: CA (occurrence: None)
  Receive Date: 20240126
  Receipt Date: 20240126
  Transmission Date: 20240410
  Serious: Yes (Death, Hospitalization, Other)
  Sender: FDA-Public Use
  Company Number: 2024A019488

PATIENT
  Age: 43 Year
  Sex: Male

DRUGS (16)
  1. BUDESONIDE [Suspect]
     Active Substance: BUDESONIDE
     Indication: Graft versus host disease in gastrointestinal tract
  2. CYCLOSPORINE [Suspect]
     Active Substance: CYCLOSPORINE
     Indication: Graft versus host disease in gastrointestinal tract
  3. CYCLOSPORINE [Suspect]
     Active Substance: CYCLOSPORINE
     Indication: Graft versus host disease in gastrointestinal tract
  4. CYCLOPHOSPHAMIDE [Suspect]
     Active Substance: CYCLOPHOSPHAMIDE
     Indication: Product used for unknown indication
  5. CYTOGAM [Suspect]
     Active Substance: HUMAN CYTOMEGALOVIRUS IMMUNE GLOBULIN
     Indication: Encephalitis cytomegalovirus
     Route: 029
  6. CYTOGAM [Suspect]
     Active Substance: HUMAN CYTOMEGALOVIRUS IMMUNE GLOBULIN
     Indication: Encephalitis cytomegalovirus
     Route: 029
  7. FOSCARNET SODIUM [Suspect]
     Active Substance: FOSCARNET SODIUM
     Indication: Encephalitis cytomegalovirus
  8. FOSCARNET SODIUM [Suspect]
     Active Substance: FOSCARNET SODIUM
     Indication: Encephalitis cytomegalovirus
  9. GANCICLOVIR [Suspect]
     Active Substance: GANCICLOVIR
     Indication: Encephalitis cytomegalovirus
     Route: 040
  10. GANCICLOVIR [Suspect]
     Active Substance: GANCICLOVIR
     Indication: Encephalitis cytomegalovirus
     Route: 040
  11. THYMOGLOBULIN [Suspect]
     Active Substance: LAPINE T-LYMPHOCYTE IMMUNE GLOBULIN
     Indication: Prophylaxis against graft versus host disease
  12. VALGANCICLOVIR HYDROCHLORIDE [Suspect]
     Active Substance: VALGANCICLOVIR HYDROCHLORIDE
     Indication: Cytomegalovirus infection reactivation
  13. RITUXIMAB [Suspect]
     Active Substance: RITUXIMAB
     Indication: Epstein-Barr viraemia
  14. PREVYMIS [Concomitant]
     Active Substance: LETERMOVIR
     Indication: Antiviral prophylaxis
  15. BENDAMUSTINE/RITUXIMAB/FLUDARABINE [Concomitant]
     Indication: Acute myeloid leukaemia
     Dosage: 30.0 MG/M2
  16. BEVACIZUMAB [Suspect]
     Active Substance: BEVACIZUMAB

REACTIONS (14)
  - Acute kidney injury [Fatal]
  - BK virus infection [Fatal]
  - Cystitis haemorrhagic [Fatal]
  - Cytomegalovirus infection reactivation [Fatal]
  - Encephalitis cytomegalovirus [Fatal]
  - Epstein-Barr viraemia [Fatal]
  - Generalised oedema [Fatal]
  - Lung disorder [Fatal]
  - Myelosuppression [Fatal]
  - Nephropathy toxic [Fatal]
  - Pancytopenia [Fatal]
  - Respiratory distress [Fatal]
  - Drug ineffective [Fatal]
  - Off label use [Fatal]
